FAERS Safety Report 6583708-1 (Version None)
Quarter: 2010Q1

REPORT INFORMATION
  Report Type: 
  Country: None (occurrence: None)
  Receive Date: 20100213
  Receipt Date: 20100213
  Transmission Date: 20100710
  Serious: Yes (Life-Threatening, Hospitalization)
  Sender: FDA-Public Use
  Company Number: None

PATIENT
  Age: 56 Year
  Sex: Male
  Weight: 78.6 kg

DRUGS (1)
  1. DOXYCYCLINE 100 MG [Suspect]
     Dosage: 100 MG TID ORAL 047
     Route: 048

REACTIONS (8)
  - ABDOMINAL PAIN [None]
  - COAGULOPATHY [None]
  - ENCEPHALOPATHY [None]
  - JAUNDICE [None]
  - LIVER TRANSPLANT [None]
  - MALAISE [None]
  - NAUSEA [None]
  - PYREXIA [None]
